FAERS Safety Report 9856239 (Version 1)
Quarter: 2014Q1

REPORT INFORMATION
  Report Type: Spontaneous
  Country: IR (occurrence: IR)
  Receive Date: 20140130
  Receipt Date: 20140130
  Transmission Date: 20141002
  Serious: Yes (Hospitalization)
  Sender: FDA-Public Use
  Company Number: PHHY2014IR009884

PATIENT
  Age: 10 Year
  Sex: Male

DRUGS (2)
  1. CICLOSPORIN [Suspect]
     Dosage: 2.5 MG/KG, PER DAY
  2. CORTICOSTEROIDS [Concomitant]
     Dosage: 5 MG, PER ALTERANTE DAY

REACTIONS (2)
  - Post transplant distal limb syndrome [Recovering/Resolving]
  - Drug level decreased [Unknown]
